FAERS Safety Report 7493997-7 (Version None)
Quarter: 2011Q2

REPORT INFORMATION
  Report Type: 
  Country: None (occurrence: None)
  Receive Date: 20110520
  Receipt Date: 20110425
  Transmission Date: 20111010
  Serious: Yes (Hospitalization)
  Sender: FDA-Public Use
  Company Number: US-ASTRAZENECA-2011SE22061

PATIENT
  Sex: Female
  Weight: 58.1 kg

DRUGS (10)
  1. SEROQUEL XR [Suspect]
     Indication: SLEEP DISORDER
     Route: 048
  2. CYMBALTA [Concomitant]
     Indication: DEPRESSION
     Route: 048
  3. PRAZOSIN HCL [Concomitant]
     Indication: SLEEP DISORDER
     Route: 048
  4. LYRICA [Concomitant]
     Indication: PAIN
     Route: 048
  5. BUSPAR [Concomitant]
     Indication: ANXIETY
     Dosage: ONE AND HALF TABLET TWO TIMES A DAY
     Route: 048
  6. PRAZOSIN HCL [Concomitant]
     Indication: NIGHTMARE
     Route: 048
  7. BETAMETHASONE [Concomitant]
     Indication: RASH
     Dosage: 1 APPLICATION DAILY TO FACE
  8. VISTARIL [Concomitant]
     Indication: ANXIETY
     Route: 048
  9. SEROQUEL XR [Suspect]
     Indication: MOOD SWINGS
     Route: 048
  10. MOBIC [Concomitant]
     Indication: PAIN
     Route: 048

REACTIONS (7)
  - DRUG INEFFECTIVE [None]
  - PAIN [None]
  - MAJOR DEPRESSION [None]
  - ALCOHOLISM [None]
  - NIGHTMARE [None]
  - GENERALISED ANXIETY DISORDER [None]
  - OFF LABEL USE [None]
